FAERS Safety Report 20734325 (Version 1)
Quarter: 2022Q2

REPORT INFORMATION
  Report Type: Spontaneous
  Country: US (occurrence: None)
  Receive Date: 20220420
  Receipt Date: 20220420
  Transmission Date: 20220721
  Serious: Yes (Death)
  Sender: FDA-Public Use
  Company Number: None

PATIENT
  Age: 78 Year
  Sex: Female
  Weight: 62.14 kg

DRUGS (13)
  1. CYCLOPHOSPHAMIDE [Suspect]
     Active Substance: CYCLOPHOSPHAMIDE
     Indication: Amyloidosis
     Dosage: FREQUENCY : WEEKLY;?
     Route: 048
  2. ALBUTEROL [Concomitant]
     Active Substance: ALBUTEROL
  3. BUMEX [Concomitant]
  4. ERGOCALCIFEROL [Concomitant]
  5. POTASSIUM 20 MEQ [Concomitant]
  6. EMEND [Concomitant]
     Active Substance: APREPITANT
  7. DECADRON [Concomitant]
     Active Substance: DEXAMETHASONE
  8. PEPCID [Concomitant]
     Active Substance: FAMOTIDINE
  9. LOPERAMIDE [Concomitant]
     Active Substance: LOPERAMIDE
  10. ZOFRAN [Concomitant]
     Active Substance: ONDANSETRON HYDROCHLORIDE
  11. COMPAZINE [Concomitant]
     Active Substance: PROCHLORPERAZINE MALEATE
  12. BACTRIM DS [Concomitant]
  13. METOLAZONE [Concomitant]

REACTIONS (1)
  - Death [None]

NARRATIVE: CASE EVENT DATE: 20220418
